FAERS Safety Report 13155284 (Version 2)
Quarter: 2017Q1

REPORT INFORMATION
  Report Type: Report from Study
  Country: US (occurrence: US)
  Receive Date: 20170126
  Receipt Date: 20170228
  Transmission Date: 20170428
  Serious: Yes (Hospitalization, Other)
  Sender: FDA-Public Use
  Company Number: US-GILEAD-2017-0254669

PATIENT
  Age: 54 Year
  Sex: Female
  Weight: 70.75 kg

DRUGS (2)
  1. AMBRISENTAN [Suspect]
     Active Substance: AMBRISENTAN
     Indication: PULMONARY ARTERIAL HYPERTENSION
     Dosage: 10 MG, QD
     Route: 065
     Dates: start: 20161206
  2. SILDENAFIL. [Concomitant]
     Active Substance: SILDENAFIL
     Indication: PULMONARY ARTERIAL HYPERTENSION
     Dates: start: 20161112

REACTIONS (7)
  - Unevaluable event [Not Recovered/Not Resolved]
  - Pneumonia [Recovered/Resolved]
  - Kidney infection [Recovered/Resolved]
  - Weight increased [Recovered/Resolved]
  - Urinary tract infection [Recovered/Resolved]
  - Feeling hot [Recovered/Resolved]
  - Overdose [Recovered/Resolved]

NARRATIVE: CASE EVENT DATE: 20161228
